FAERS Safety Report 7726314-5 (Version None)
Quarter: 2011Q3

REPORT INFORMATION
  Report Type: 
  Country: None (occurrence: None)
  Receive Date: 20110902
  Receipt Date: 20110810
  Transmission Date: 20111222
  Serious: No
  Sender: FDA-Public Use
  Company Number: US-BAYER-2011-073648

PATIENT
  Age: 26 Year
  Sex: Female

DRUGS (1)
  1. MIRENA [Suspect]
     Dosage: 20 ?G/D, UNK
     Route: 015
     Dates: start: 20110803

REACTIONS (4)
  - HYPOAESTHESIA [None]
  - BACK PAIN [None]
  - HEADACHE [None]
  - ABDOMINAL PAIN LOWER [None]
